FAERS Safety Report 11239009 (Version 1)
Quarter: 2015Q3

REPORT INFORMATION
  Report Type: Spontaneous
  Country: DE (occurrence: DE)
  Receive Date: 20150706
  Receipt Date: 20150706
  Transmission Date: 20151125
  Serious: Yes (Death, Other)
  Sender: FDA-Public Use
  Company Number: DE-ROCHE-1593330

PATIENT
  Sex: Male

DRUGS (5)
  1. AMLODIPIN [Concomitant]
     Active Substance: AMLODIPINE BESYLATE
     Route: 065
  2. RAMIPRIL. [Concomitant]
     Active Substance: RAMIPRIL
     Route: 065
  3. ALLOPURINOL. [Concomitant]
     Active Substance: ALLOPURINOL
     Route: 065
  4. ZELBORAF [Suspect]
     Active Substance: VEMURAFENIB
     Indication: METASTATIC MALIGNANT MELANOMA
     Route: 048
     Dates: start: 20150601, end: 20150608
  5. TOREM [Concomitant]
     Active Substance: TORSEMIDE
     Route: 065

REACTIONS (5)
  - General physical health deterioration [Unknown]
  - Malignant neoplasm progression [Fatal]
  - Tumour marker increased [Unknown]
  - Liver function test abnormal [Unknown]
  - Blood bilirubin increased [Unknown]
